FAERS Safety Report 8938292 (Version 1)
Quarter: 2012Q4

REPORT INFORMATION
  Report Type: 
  Country: US (occurrence: US)
  Receive Date: 20121203
  Receipt Date: 20121203
  Transmission Date: 20130627
  Serious: Yes (Hospitalization)
  Sender: FDA-Public Use
  Company Number: US-MYLANLABS-2012S1024013

PATIENT
  Age: 13 Year

DRUGS (1)
  1. METHOTREXATE [Suspect]
     Indication: ACUTE LYMPHOCYTIC LEUKAEMIA
     Route: 037

REACTIONS (9)
  - Neurotoxicity [Recovering/Resolving]
  - Urinary retention [Recovered/Resolved]
  - Muscle spasms [Recovering/Resolving]
  - Visual impairment [Recovering/Resolving]
  - Hemiparesis [Recovering/Resolving]
  - Dysphagia [Recovering/Resolving]
  - Dysarthria [Recovering/Resolving]
  - Abdominal pain [Recovering/Resolving]
  - Nausea [Recovering/Resolving]
